FAERS Safety Report 8894914 (Version 1)
Quarter: 2012Q4

REPORT INFORMATION
  Report Type: 
  Country: US (occurrence: US)
  Receive Date: 20121107
  Receipt Date: 20121107
  Transmission Date: 20130627
  Serious: No
  Sender: FDA-Public Use
  Company Number: US-AMGEN-USASP2011049743

PATIENT
  Age: 12 Year
  Sex: Male
  Weight: 101.59 kg

DRUGS (2)
  1. ENBREL [Suspect]
     Indication: PSORIASIS
     Dosage: 50 mg, 2 times/wk
  2. CLOBEX                             /00012002/ [Concomitant]
     Dosage: 0.05 %, UNK

REACTIONS (3)
  - Erythema [Unknown]
  - Pain [Unknown]
  - Pyrexia [Unknown]
